FAERS Safety Report 4352730-8 (Version None)
Quarter: 2004Q2

REPORT INFORMATION
  Report Type: 
  Country: None (occurrence: None)
  Receive Date: 20040504
  Receipt Date: 20031029
  Transmission Date: 20050107
  Serious: Yes (Death)
  Sender: FDA-Public Use
  Company Number: US-GLAXOSMITHKLINE-B0313889A

PATIENT
  Age: 38 Year
  Sex: Female

DRUGS (5)
  1. BUPROPION HCL [Suspect]
     Route: 048
  2. ACETAMINOPHEN [Suspect]
     Dosage: 75000MG PER DAY
     Route: 048
  3. ALPRAZOLAM [Suspect]
     Route: 048
  4. NAPROXEN [Suspect]
  5. MA HUANG [Suspect]

REACTIONS (6)
  - CARDIO-RESPIRATORY ARREST [None]
  - CARDIOPULMONARY FAILURE [None]
  - COMPLETED SUICIDE [None]
  - DROWNING [None]
  - INTENTIONAL OVERDOSE [None]
  - MULTIPLE DRUG OVERDOSE [None]
